FAERS Safety Report 6653910-9 (Version None)
Quarter: 2010Q1

REPORT INFORMATION
  Report Type: 
  Country: None (occurrence: None)
  Receive Date: 20100326
  Receipt Date: 20100311
  Transmission Date: 20100710
  Serious: Yes (Disabling)
  Sender: FDA-Public Use
  Company Number: MY-GENENTECH-299608

PATIENT
  Age: 60 Year
  Sex: Male

DRUGS (1)
  1. LUCENTIS [Suspect]
     Indication: MACULAR DEGENERATION
     Dosage: 0.25 ML, UNK
     Route: 031

REACTIONS (3)
  - OPTIC NEURITIS [None]
  - VISUAL ACUITY REDUCED [None]
  - VITREOUS FLOATERS [None]
